FAERS Safety Report 7860909-3 (Version None)
Quarter: 2011Q4

REPORT INFORMATION
  Report Type: 
  Country: None (occurrence: None)
  Receive Date: 20111027
  Receipt Date: 20111021
  Transmission Date: 20120403
  Serious: Yes (Death, Hospitalization, Disabling, Other)
  Sender: FDA-Public Use
  Company Number: US-MERCK-1108USA01128

PATIENT
  Age: 84 Year
  Sex: Female
  Weight: 56 kg

DRUGS (1)
  1. FOSAMAX [Suspect]
     Indication: OSTEOPOROSIS
     Route: 048
     Dates: start: 20000101, end: 20060101

REACTIONS (14)
  - PLEURAL EFFUSION [None]
  - ARTHROPATHY [None]
  - BACK DISORDER [None]
  - ULNA FRACTURE [None]
  - MEMORY IMPAIRMENT [None]
  - DEATH [None]
  - HIP FRACTURE [None]
  - INCONTINENCE [None]
  - UTERINE DISORDER [None]
  - FEMUR FRACTURE [None]
  - ACUTE MYOCARDIAL INFARCTION [None]
  - ATRIAL FIBRILLATION [None]
  - RADIUS FRACTURE [None]
  - BREAST MASS [None]
